FAERS Safety Report 9521567 (Version 1)
Quarter: 2013Q1

REPORT INFORMATION
  Report Type: Spontaneous
  Country: US (occurrence: None)
  Receive Date: 20130305
  Receipt Date: 20130305
  Transmission Date: 20140127
  Serious: Yes (Disabling)
  Sender: FDA-Public Use
  Company Number: 163-21880-12072099

PATIENT
  Age: 70 Year
  Sex: Male

DRUGS (16)
  1. REVLIMID (LENALIDOMIDE) (CAPSULES) [Suspect]
     Indication: PLASMA CELL MYELOMA
     Dosage: 10 MG, 21 IN 28 D, PO TEMPORARILY INTERRUPTED
     Route: 048
     Dates: start: 20120405
  2. ACYCLOVIR (ACICLOVIR) (ACICLOVIR) [Concomitant]
  3. ASPIRIN (ACETYLSALICYLIC ACID) [Concomitant]
  4. CARVEDILOL (CARVEDILOL) [Concomitant]
  5. DEXAMETHASONE (DEXAMETHASONE) [Concomitant]
  6. DIGOXIN (DIGOXIN) [Concomitant]
  7. DILTIAZEM (DILTIAZEM0 [Concomitant]
  8. FLOMAX (TAMULOSIN) [Concomitant]
  9. LASIX (FUROSEMIDE) [Concomitant]
  10. LEVALBUTEROL (LEVOSALBUTAMOL) [Concomitant]
  11. OMEPRAZOLE (OMEPRAZOLE) [Concomitant]
  12. POTASSIUM (POTASSIUM0 [Concomitant]
  13. REMERON (MIRTAZAPINE) [Concomitant]
  14. VELCADE (BORTEZOMIB) [Concomitant]
  15. VITAMIN B12 (CYANOCOBALAMIN) [Concomitant]
  16. VITAMIN B6 (PYRIDOXINE HYDROCHLORIDE) [Concomitant]

REACTIONS (1)
  - Chronic obstructive pulmonary disease [None]
